FAERS Safety Report 7864599-5 (Version None)
Quarter: 2011Q4

REPORT INFORMATION
  Report Type: 
  Country: None (occurrence: None)
  Receive Date: 20111028
  Receipt Date: 20110503
  Transmission Date: 20120403
  Serious: No
  Sender: FDA-Public Use
  Company Number: US-GLAXOSMITHKLINE-A0926429A

PATIENT
  Age: 60 Year
  Sex: Female
  Weight: 63.6 kg

DRUGS (8)
  1. DEPAKOTE [Concomitant]
     Indication: TRIGEMINAL NEURALGIA
     Dosage: 125MG TWICE PER DAY
     Route: 048
  2. XANAX [Concomitant]
     Indication: TRIGEMINAL NEURALGIA
     Dosage: .5MG VARIABLE DOSE
     Route: 048
  3. FENTANYL-100 [Concomitant]
     Indication: TRIGEMINAL NEURALGIA
  4. AMBIEN [Concomitant]
     Indication: SLEEP DISORDER
     Dosage: 10MG AT NIGHT
     Route: 048
  5. EFFEXOR XR [Concomitant]
     Indication: DEPRESSION
     Dosage: 150MG TWICE PER DAY
     Route: 048
  6. HORMONE REPLACEMENT [Concomitant]
     Indication: HORMONE REPLACEMENT THERAPY
     Route: 048
  7. MORPHINE [Concomitant]
     Indication: TRIGEMINAL NEURALGIA
     Dosage: 15MG VARIABLE DOSE
     Route: 048
  8. SUMATRIPTAN SUCCINATE [Suspect]
     Indication: MIGRAINE
     Dosage: 1SPR AS REQUIRED
     Route: 045
     Dates: start: 20101001

REACTIONS (1)
  - TRIGEMINAL NEURALGIA [None]
